FAERS Safety Report 11350083 (Version 6)
Quarter: 2015Q3

REPORT INFORMATION
  Report Type: Spontaneous
  Country: US (occurrence: US)
  Receive Date: 20150807
  Receipt Date: 20150824
  Transmission Date: 20151125
  Serious: Yes (Hospitalization)
  Sender: FDA-Public Use
  Company Number: US-JNJFOC-20150722921

PATIENT
  Age: 69 Year
  Sex: Male
  Weight: 79.38 kg

DRUGS (14)
  1. AMIODARONE [Concomitant]
     Active Substance: AMIODARONE
     Dosage: 1 DAILY EVENING
     Route: 065
  2. XARELTO [Suspect]
     Active Substance: RIVAROXABAN
     Indication: CEREBROVASCULAR ACCIDENT PROPHYLAXIS
     Route: 048
     Dates: start: 20150629, end: 20150710
  3. IBUPROFEN. [Concomitant]
     Active Substance: IBUPROFEN
     Indication: PAIN
     Route: 048
  4. IBUPROFEN. [Concomitant]
     Active Substance: IBUPROFEN
     Indication: PAIN
     Route: 048
  5. ASPIRIN. [Suspect]
     Active Substance: ASPIRIN
     Indication: ANTIPLATELET THERAPY
     Route: 048
     Dates: end: 20150710
  6. CRESTOR [Concomitant]
     Active Substance: ROSUVASTATIN CALCIUM
     Route: 048
  7. COREG [Concomitant]
     Active Substance: CARVEDILOL
     Indication: HYPERTENSION
     Route: 065
  8. TYLENOL [Concomitant]
     Active Substance: ACETAMINOPHEN
     Indication: PAIN
     Route: 054
  9. VASOTEC [Concomitant]
     Active Substance: ENALAPRIL MALEATE
     Route: 048
  10. XARELTO [Suspect]
     Active Substance: RIVAROXABAN
     Indication: ATRIAL FIBRILLATION
     Route: 048
     Dates: start: 20150629, end: 20150710
  11. DIGOXIN. [Concomitant]
     Active Substance: DIGOXIN
     Route: 065
  12. COREG [Concomitant]
     Active Substance: CARVEDILOL
     Indication: HYPERTENSION
     Route: 065
  13. LORATADINE. [Concomitant]
     Active Substance: LORATADINE
     Route: 065
  14. TYLENOL [Concomitant]
     Active Substance: ACETAMINOPHEN
     Indication: PYREXIA
     Route: 054

REACTIONS (2)
  - Seizure [Unknown]
  - Subdural haematoma [Recovering/Resolving]

NARRATIVE: CASE EVENT DATE: 20150710
